FAERS Safety Report 13380839 (Version 1)
Quarter: 2017Q1

REPORT INFORMATION
  Report Type: Report from Study
  Country: US (occurrence: US)
  Receive Date: 20170329
  Receipt Date: 20170329
  Transmission Date: 20170429
  Serious: Yes (Hospitalization, Other)
  Sender: FDA-Public Use
  Company Number: US-AMGEN-USACT2017046357

PATIENT
  Age: 49 Year
  Sex: Male
  Weight: 82 kg

DRUGS (1)
  1. ROMIPLOSTIM [Suspect]
     Active Substance: ROMIPLOSTIM
     Indication: THROMBOCYTOPENIA
     Dosage: 200 MUG, QWK
     Route: 058
     Dates: start: 20170110

REACTIONS (2)
  - Hepatic encephalopathy [Recovering/Resolving]
  - Ammonia increased [Recovering/Resolving]

NARRATIVE: CASE EVENT DATE: 20170322
